FAERS Safety Report 22522357 (Version 1)
Quarter: 2023Q2

REPORT INFORMATION
  Report Type: Spontaneous
  Country: KR (occurrence: KR)
  Receive Date: 20230605
  Receipt Date: 20230605
  Transmission Date: 20230721
  Serious: Yes (Hospitalization)
  Sender: FDA-Public Use
  Company Number: KR-ORGANON-O2305KOR003123

PATIENT
  Age: 80 Year
  Sex: Male
  Weight: 64.4 kg

DRUGS (14)
  1. COZAAR [Suspect]
     Active Substance: LOSARTAN POTASSIUM
     Dosage: UNK, FORMULATION: FILM-COATED TABLET
     Route: 048
     Dates: start: 20191014
  2. CARBOPLATIN [Suspect]
     Active Substance: CARBOPLATIN
     Indication: Lung carcinoma cell type unspecified stage 0
     Dosage: 605.2 MILLIGRAM, 3 WEEK
     Dates: start: 20180823, end: 20180823
  3. CARBOPLATIN [Suspect]
     Active Substance: CARBOPLATIN
     Dosage: 565.5 MILLIGRAM, 3 WEEK
     Dates: start: 20180912, end: 20180912
  4. CARBOPLATIN [Suspect]
     Active Substance: CARBOPLATIN
     Dosage: 625 MILLIGRAM, 3 WEEK
     Dates: start: 20181005, end: 20181005
  5. CARBOPLATIN [Suspect]
     Active Substance: CARBOPLATIN
     Dosage: 554.6 MILLIGRAM, 3 WEEK
     Dates: start: 20181026, end: 20181026
  6. PACLITAXEL [Suspect]
     Active Substance: PACLITAXEL
     Indication: Lung carcinoma cell type unspecified stage 0
     Dosage: 334 MILLIGRAM, 3 WEEK
     Dates: start: 20180823, end: 20181005
  7. PACLITAXEL [Suspect]
     Active Substance: PACLITAXEL
     Dosage: 250.5 MILLIGRAM, 3 WEEK
     Dates: start: 20181026, end: 20181026
  8. BEVACIZUMAB [Suspect]
     Active Substance: BEVACIZUMAB
     Indication: Lung carcinoma cell type unspecified stage 0
     Dosage: 900 MILLIGRAM, 3 WEEK
     Dates: start: 20180823
  9. EZETIMIBE [Concomitant]
     Active Substance: EZETIMIBE
     Dosage: UNK
     Dates: start: 20120418, end: 20191013
  10. LOSARTAN POTASSIUM [Concomitant]
     Active Substance: LOSARTAN POTASSIUM
     Dosage: UNK
     Route: 048
     Dates: start: 20120418, end: 20191013
  11. ROSUVASTATIN CALCIUM [Concomitant]
     Active Substance: ROSUVASTATIN CALCIUM
     Dosage: UNK
     Route: 048
     Dates: start: 20120418, end: 20191013
  12. METFORMIN HYDROCHLORIDE [Concomitant]
     Active Substance: METFORMIN HYDROCHLORIDE
     Dosage: UNK
     Route: 048
     Dates: start: 20120418
  13. PREDNISOLONE [Concomitant]
     Active Substance: PREDNISOLONE
     Dosage: UNK, FORMULATION: UNCOATED TABLET
     Route: 048
     Dates: start: 20190521
  14. TAMSULOSIN HYDROCHLORIDE [Concomitant]
     Active Substance: TAMSULOSIN HYDROCHLORIDE
     Dosage: UNK, FORMULATION: SLOW-RELEASE FILM-COATED TABLET
     Route: 048
     Dates: start: 20190518

REACTIONS (1)
  - Haemorrhoids [Recovered/Resolved]

NARRATIVE: CASE EVENT DATE: 20191030
